FAERS Safety Report 16902192 (Version 3)
Quarter: 2020Q2

REPORT INFORMATION
  Report Type: Spontaneous
  Country: GB (occurrence: GB)
  Receive Date: 20191010
  Receipt Date: 20200526
  Transmission Date: 20200713
  Serious: Yes (Death, Other)
  Sender: FDA-Public Use
  Company Number: GB-AUROBINDO-AUR-APL-2019-065494

PATIENT
  Age: 23 Year
  Sex: Male
  Weight: 75 kg

DRUGS (5)
  1. LOFEPRAMINE HYDROCHLORIDE [Concomitant]
     Active Substance: LOFEPRAMINE HYDROCHLORIDE
     Indication: PRODUCT USED FOR UNKNOWN INDICATION
     Dosage: 140 MILLIGRAM, ONCE A DAY
     Route: 065
     Dates: start: 20180109
  2. LAMOTRIGINE. [Suspect]
     Active Substance: LAMOTRIGINE
     Dosage: 200 MILLIGRAM, ONCE A DAY (200MG MIDNIGHT 14 DAYS)
     Route: 048
     Dates: start: 20181208
  3. LAMOTRIGINE. [Suspect]
     Active Substance: LAMOTRIGINE
     Indication: MOOD SWINGS
     Dosage: 25 MILLIGRAM, ONCE A DAY (25MG MIDNIGHT 3 DAYS)
     Route: 048
     Dates: start: 20181121, end: 20181124
  4. LAMOTRIGINE. [Suspect]
     Active Substance: LAMOTRIGINE
     Dosage: 50 MILLIGRAM, ONCE A DAY (50 MIDNIGHT 4 DAYS)
     Route: 048
     Dates: start: 20181125, end: 20181129
  5. LAMOTRIGINE. [Suspect]
     Active Substance: LAMOTRIGINE
     Dosage: 100 MILLIGRAM, ONCE A DAY (100 MIDNIGHT 7 DAYS)
     Route: 048
     Dates: start: 20181130, end: 20181207

REACTIONS (1)
  - Completed suicide [Fatal]

NARRATIVE: CASE EVENT DATE: 20181214
